FAERS Safety Report 21384051 (Version 1)
Quarter: 2022Q3

REPORT INFORMATION
  Report Type: Report from Study
  Country: CO (occurrence: CO)
  Receive Date: 20220928
  Receipt Date: 20220928
  Transmission Date: 20221026
  Serious: Yes (Hospitalization)
  Sender: FDA-Public Use
  Company Number: CO-ABBVIE-22K-036-4285336-00

PATIENT
  Age: 58 Year
  Sex: Male
  Weight: 58 kg

DRUGS (3)
  1. ZEMPLAR [Suspect]
     Active Substance: PARICALCITOL
     Indication: Hyperparathyroidism secondary
     Route: 042
     Dates: start: 20200623, end: 20211216
  2. MIRCERA [Concomitant]
     Active Substance: METHOXY POLYETHYLENE GLYCOL-EPOETIN BETA
     Indication: Anaemia
     Dates: start: 20220917
  3. VANCOMYCIN [Suspect]
     Active Substance: VANCOMYCIN
     Indication: Device related infection

REACTIONS (18)
  - Device related infection [Recovered/Resolved]
  - Anaemia [Not Recovered/Not Resolved]
  - Blood triglycerides increased [Not Recovered/Not Resolved]
  - Anaemia [Recovering/Resolving]
  - Rash [Unknown]
  - Headache [Recovered/Resolved]
  - Respiratory disorder [Recovered/Resolved]
  - Pyrexia [Recovered/Resolved]
  - Drug hypersensitivity [Unknown]
  - Dialysis related complication [Recovered/Resolved]
  - Decreased appetite [Recovered/Resolved]
  - Chills [Recovered/Resolved]
  - Thirst [Recovered/Resolved]
  - Drug eruption [Unknown]
  - Laziness [Not Recovered/Not Resolved]
  - Lip dry [Recovered/Resolved]
  - Fatigue [Not Recovered/Not Resolved]
  - Asphyxia [Not Recovered/Not Resolved]

NARRATIVE: CASE EVENT DATE: 20210201
